FAERS Safety Report 6527375-1 (Version None)
Quarter: 2010Q1

REPORT INFORMATION
  Report Type: 
  Country: None (occurrence: None)
  Receive Date: 20100105
  Receipt Date: 20091230
  Transmission Date: 20100710
  Serious: Yes (Hospitalization)
  Sender: FDA-Public Use
  Company Number: US-MEDIMMUNE-MEDI-0009966

PATIENT
  Sex: Female
  Weight: 4.449 kg

DRUGS (4)
  1. SYNAGIS [Suspect]
     Dates: start: 20090718, end: 20091106
  2. SYNAGIS [Suspect]
     Dates: start: 20091208, end: 20091208
  3. POLYVISOL [Concomitant]
  4. ZANTAC [Concomitant]

REACTIONS (2)
  - BRONCHIOLITIS [None]
  - MENINGITIS ENTEROVIRAL [None]
